FAERS Safety Report 6825481-5 (Version None)
Quarter: 2010Q3

REPORT INFORMATION
  Report Type: 
  Country: None (occurrence: None)
  Receive Date: 20100708
  Receipt Date: 20070319
  Transmission Date: 20110219
  Serious: No
  Sender: FDA-Public Use
  Company Number: US-PFIZER INC-2006151922

PATIENT
  Sex: Female
  Weight: 58.97 kg

DRUGS (9)
  1. CHANTIX [Suspect]
     Indication: EX-TOBACCO USER
     Dates: start: 20061101
  2. LIPITOR [Concomitant]
  3. ASACOL [Concomitant]
  4. ENTOCORT EC [Concomitant]
  5. IBANDRONATE SODIUM [Concomitant]
  6. DEPAKOTE [Concomitant]
  7. REMERON [Concomitant]
  8. GEODON [Concomitant]
  9. CYMBALTA [Concomitant]

REACTIONS (2)
  - ABNORMAL DREAMS [None]
  - POLLAKIURIA [None]
